FAERS Safety Report 7951834-8 (Version None)
Quarter: 2011Q4

REPORT INFORMATION
  Report Type: 
  Country: None (occurrence: None)
  Receive Date: 20111201
  Receipt Date: 20111122
  Transmission Date: 20120403
  Serious: Yes (Other)
  Sender: FDA-Public Use
  Company Number: JP-SANOFI-AVENTIS-2011SA072212

PATIENT

DRUGS (1)
  1. ALLEGRA [Suspect]
     Indication: URTICARIA
     Route: 065
     Dates: start: 20111028, end: 20111029

REACTIONS (1)
  - ANAPHYLACTIC SHOCK [None]
